FAERS Safety Report 13877711 (Version 3)
Quarter: 2017Q3

REPORT INFORMATION
  Report Type: Report from Study
  Country: CA (occurrence: CA)
  Receive Date: 20170817
  Receipt Date: 20170929
  Transmission Date: 20171127
  Serious: Yes (Hospitalization)
  Sender: FDA-Public Use
  Company Number: CA-JNJFOC-20170813484

PATIENT
  Age: 77 Year
  Sex: Female
  Weight: 65 kg

DRUGS (2)
  1. STELARA [Suspect]
     Active Substance: USTEKINUMAB
     Indication: PSORIATIC ARTHROPATHY
     Route: 058
     Dates: start: 20160606, end: 20170926
  2. VITALUX [Concomitant]
     Active Substance: MINERALS\VITAMINS
     Route: 065

REACTIONS (5)
  - Product use issue [Unknown]
  - Pulmonary oedema [Unknown]
  - Upper respiratory tract infection [Unknown]
  - Lung infection [Not Recovered/Not Resolved]
  - Off label use [Unknown]

NARRATIVE: CASE EVENT DATE: 20160606
